FAERS Safety Report 7806102-1 (Version None)
Quarter: 2011Q4

REPORT INFORMATION
  Report Type: 
  Country: None (occurrence: None)
  Receive Date: 20111007
  Receipt Date: 20111007
  Transmission Date: 20120403
  Serious: Yes (Life-Threatening, Other)
  Sender: FDA-Public Use
  Company Number: None

PATIENT
  Age: 50 Year
  Sex: Female
  Weight: 74.8435 kg

DRUGS (2)
  1. EFFEXOR XR [Suspect]
     Indication: HOT FLUSH
     Dosage: 75 MG DAILY ORAL TO PRESENTLY BEING WEANED OFF
     Route: 048
     Dates: start: 20110818
  2. EFFEXOR XR [Suspect]
     Indication: MENOPAUSAL SYMPTOMS
     Dosage: 75 MG DAILY ORAL TO PRESENTLY BEING WEANED OFF
     Route: 048
     Dates: start: 20110818

REACTIONS (1)
  - DRUG WITHDRAWAL SYNDROME [None]
